FAERS Safety Report 18035761 (Version 1)
Quarter: 2020Q3

REPORT INFORMATION
  Report Type: Spontaneous
  Country: IT (occurrence: IT)
  Receive Date: 20200717
  Receipt Date: 20200717
  Transmission Date: 20201103
  Serious: Yes (Other)
  Sender: FDA-Public Use
  Company Number: IT-TEVA-2020-IT-1800650

PATIENT
  Age: 55 Year
  Sex: Female

DRUGS (5)
  1. CYCLOPHOSPHAMIDE. [Suspect]
     Active Substance: CYCLOPHOSPHAMIDE
     Indication: BREAST NEOPLASM
     Dosage: 850 MG
     Route: 065
     Dates: start: 19980827, end: 19990121
  2. FLUOROURACIL. [Suspect]
     Active Substance: FLUOROURACIL
     Indication: BREAST NEOPLASM
     Dosage: 850 MG
     Route: 065
     Dates: start: 19980827, end: 19990121
  3. DOXORUBICIN HYDROCHLORIDE. [Suspect]
     Active Substance: DOXORUBICIN HYDROCHLORIDE
     Indication: BREAST NEOPLASM
     Dosage: 150 MG
     Route: 065
     Dates: start: 19980604, end: 19980716
  4. GRANISETRON [Concomitant]
     Active Substance: GRANISETRON
  5. BRIMEXATE [Suspect]
     Active Substance: METHOTREXATE SODIUM
     Indication: BREAST NEOPLASM
     Dosage: 55 MG
     Route: 065
     Dates: start: 19980827, end: 19990121

REACTIONS (1)
  - Cardiac failure [Unknown]

NARRATIVE: CASE EVENT DATE: 20041217
